FAERS Safety Report 8007002-7 (Version None)
Quarter: 2011Q4

REPORT INFORMATION
  Report Type: 
  Country: None (occurrence: None)
  Receive Date: 20111227
  Receipt Date: 20111219
  Transmission Date: 20120403
  Serious: Yes (Other)
  Sender: FDA-Public Use
  Company Number: CA-B.I. PHARMACEUTICALS,INC./RIDGEFIELD-2011-CN-02000CN

PATIENT
  Sex: Male

DRUGS (9)
  1. METFORMIN [Concomitant]
     Route: 065
  2. REVLIMID [Concomitant]
     Indication: MULTIPLE MYELOMA
     Dosage: 20 MG
     Route: 048
     Dates: start: 20100121
  3. PRADAXA [Suspect]
     Route: 065
  4. AVODART [Concomitant]
     Route: 065
  5. CRESTOR [Concomitant]
     Route: 065
  6. GLICLAZIDE [Concomitant]
     Route: 065
  7. RAMIPRIL [Concomitant]
     Route: 065
  8. DEXAMETHASONE [Concomitant]
     Route: 065
  9. FLOMAX [Suspect]
     Route: 065

REACTIONS (2)
  - CEREBROVASCULAR ACCIDENT [None]
  - PROSTATIC HAEMORRHAGE [None]
